FAERS Safety Report 6163418-5 (Version None)
Quarter: 2009Q2

REPORT INFORMATION
  Report Type: 
  Country: None (occurrence: None)
  Receive Date: 20090422
  Receipt Date: 20090416
  Transmission Date: 20091009
  Serious: Yes (Other)
  Sender: FDA-Public Use
  Company Number: PHEH2007US06794

PATIENT
  Sex: Female
  Weight: 92.971 kg

DRUGS (2)
  1. ZOMETA [Suspect]
  2. AREDIA [Suspect]

REACTIONS (9)
  - ANHEDONIA [None]
  - ANXIETY [None]
  - COMPRESSION FRACTURE [None]
  - DIVERTICULUM [None]
  - GENERAL PHYSICAL HEALTH DETERIORATION [None]
  - OSTEONECROSIS [None]
  - PAIN [None]
  - RIB FRACTURE [None]
  - SPONDYLOLISTHESIS [None]
